FAERS Safety Report 12863825 (Version 1)
Quarter: 2016Q4

REPORT INFORMATION
  Report Type: Spontaneous
  Country: US (occurrence: US)
  Receive Date: 20161019
  Receipt Date: 20161019
  Transmission Date: 20170207
  Serious: Yes (Hospitalization, Other)
  Sender: FDA-Public Use
  Company Number: US-ACTELION-A-US2016-143908

PATIENT

DRUGS (1)
  1. VELETRI [Suspect]
     Active Substance: EPOPROSTENOL
     Indication: PORTOPULMONARY HYPERTENSION
     Route: 042

REACTIONS (3)
  - Shock [Unknown]
  - Renal failure [Unknown]
  - Pulmonary arterial pressure increased [Unknown]
